FAERS Safety Report 4699173-5 (Version None)
Quarter: 2005Q2

REPORT INFORMATION
  Report Type: 
  Country: None (occurrence: None)
  Receive Date: 20050624
  Receipt Date: 20050613
  Transmission Date: 20051028
  Serious: Yes (Other)
  Sender: FDA-Public Use
  Company Number: US-JNJFOC-20050604008

PATIENT
  Age: 46 Year
  Sex: Male

DRUGS (3)
  1. FENTANYL [Suspect]
     Route: 062
  2. DURAGESIC-100 [Suspect]
     Route: 062
     Dates: end: 20050609
  3. DURAGESIC-100 [Suspect]
     Indication: INTENTIONAL MISUSE
     Route: 062
     Dates: end: 20050609

REACTIONS (8)
  - DIARRHOEA [None]
  - DRUG ABUSER [None]
  - DRUG DEPENDENCE [None]
  - DRUG WITHDRAWAL SYNDROME [None]
  - HYPERHIDROSIS [None]
  - INCORRECT ROUTE OF DRUG ADMINISTRATION [None]
  - RETCHING [None]
  - TREMOR [None]
